FAERS Safety Report 22864143 (Version 5)
Quarter: 2023Q4

REPORT INFORMATION
  Report Type: Report from Study
  Country: CZ (occurrence: CZ)
  Receive Date: 20230825
  Receipt Date: 20231025
  Transmission Date: 20240109
  Serious: Yes (Death, Life-Threatening, Hospitalization)
  Sender: FDA-Public Use
  Company Number: CZ-BAXTER-2023BAX028423

PATIENT
  Age: 76 Year
  Sex: Male
  Weight: 85 kg

DRUGS (31)
  1. RITUXIMAB [Suspect]
     Active Substance: RITUXIMAB
     Indication: Diffuse large B-cell lymphoma
     Dosage: 757.85 MG EVERY 3 WEEK
     Route: 042
     Dates: start: 20230613, end: 20230711
  2. VINCRISTINE [Suspect]
     Active Substance: VINCRISTINE
     Indication: Diffuse large B-cell lymphoma
     Dosage: 2 MG EVERY 3 WEEK.
     Route: 042
     Dates: start: 20230613, end: 20230711
  3. DOXORUBICIN [Suspect]
     Active Substance: DOXORUBICIN
     Indication: Diffuse large B-cell lymphoma
     Dosage: DOXORUBICIN WAS DOWNGRADED FROM BAXTER TO NON-BAXTER DRUG
     Route: 042
     Dates: start: 20230613, end: 20230711
  4. CYCLOPHOSPHAMIDE [Suspect]
     Active Substance: CYCLOPHOSPHAMIDE
     Indication: Diffuse large B-cell lymphoma
     Dosage: CYCLOPHOSPHAMIDE WAS RESELECTED AS BAXTER MANUFACTURER
     Route: 042
     Dates: start: 20230613, end: 20230711
  5. EPCORITAMAB [Suspect]
     Active Substance: EPCORITAMAB
     Indication: Diffuse large B-cell lymphoma
     Dosage: 0.8 MG C1D8, INTERMEDIATE DOSE, TOTAL
     Route: 058
     Dates: start: 20230620, end: 20230620
  6. EPCORITAMAB [Suspect]
     Active Substance: EPCORITAMAB
     Dosage: 48 MG FULL DOSE C1, D15, TOTAL
     Route: 058
     Dates: start: 20230627, end: 20230718
  7. EPCORITAMAB [Suspect]
     Active Substance: EPCORITAMAB
     Dosage: 48 MG C1 (STEP-UP), CYCLES 2 - 4 (21-DAY CYCLE, WEEKLY DOSE), C5 - 8 (21-DAY CYCLE, EVERY 3, WEEKS)
     Route: 058
     Dates: start: 20230613, end: 20230613
  8. EPCORITAMAB [Suspect]
     Active Substance: EPCORITAMAB
     Dosage: 48 MG C2, D15, EVERY 1 WEEKS
     Route: 065
     Dates: start: 20230808, end: 20230808
  9. EPCORITAMAB [Suspect]
     Active Substance: EPCORITAMAB
     Dosage: 48 MG, EVERY 1 WEEKS
     Route: 065
     Dates: start: 20230711, end: 20230718
  10. PREDNISONE [Suspect]
     Active Substance: PREDNISONE
     Indication: Diffuse large B-cell lymphoma
     Dosage: 100 MG, EVERY 1 DAYS
     Route: 048
     Dates: start: 20230613, end: 20230711
  11. FILGRASTIM [Concomitant]
     Active Substance: FILGRASTIM
     Dosage: 48 IU
     Dates: start: 20230620, end: 20230622
  12. FILGRASTIM [Concomitant]
     Active Substance: FILGRASTIM
     Dosage: 48 IU, EVERY 1 DAYS
     Dates: start: 20230713
  13. TRAMADOL [Concomitant]
     Active Substance: TRAMADOL\TRAMADOL HYDROCHLORIDE
     Indication: Spinal pain
     Dosage: 100 MG, AS NECESSARY
     Dates: start: 20230719
  14. PERINDOPRIL [Concomitant]
     Active Substance: PERINDOPRIL
     Indication: Hypertension
     Dosage: 2 MG, EVERY 1 DAYS
     Dates: start: 20030610
  15. CONTROLOC [Concomitant]
     Active Substance: PANTOPRAZOLE SODIUM
     Dosage: 40 MG, EVERY 1 DAYS
     Dates: start: 20230610
  16. ALLOPURINOL [Concomitant]
     Active Substance: ALLOPURINOL
     Indication: Prophylaxis
     Dosage: 300 MG, EVERY 1 DAYS
     Dates: start: 20230609
  17. TOCILIZUMAB [Concomitant]
     Active Substance: TOCILIZUMAB
     Dosage: 800 MG, AS NECESSARY
     Route: 065
     Dates: start: 20230704
  18. SULFAMETHOXAZOLE\TRIMETHOPRIM [Concomitant]
     Active Substance: SULFAMETHOXAZOLE\TRIMETHOPRIM
     Indication: Infection prophylaxis
     Dosage: 1 TABLET SULFAMETHOXAZOLE 800 MG/TRIMETHOPRIM 160 MG, 2/DAYS
     Dates: start: 20230610
  19. ANIDULAFUNGIN [Concomitant]
     Active Substance: ANIDULAFUNGIN
     Indication: Antifungal prophylaxis
     Dosage: 100 MG, EVERY 1 DAYS
     Dates: start: 20230722, end: 20230810
  20. TAMSULOSIN HYDROCHLORIDE [Concomitant]
     Active Substance: TAMSULOSIN HYDROCHLORIDE
     Dosage: 0.4 MG, EVERY 1 DAY, START DATE:2020
  21. NADROPARIN CALCIUM [Concomitant]
     Active Substance: NADROPARIN CALCIUM
     Indication: Thrombosis prophylaxis
     Dosage: 0.4 ML, EVERY 1 DAYS
     Dates: start: 20230720, end: 20230810
  22. OMEPRAZOLE [Concomitant]
     Active Substance: OMEPRAZOLE
     Indication: Dyspepsia
     Dosage: 20 MG, 2/DAYS, START DATE: FEB-2023
     Dates: end: 20230719
  23. ACYCLOVIR [Concomitant]
     Active Substance: ACYCLOVIR
     Indication: Antiviral prophylaxis
     Dosage: 500 MG, EVERY 1 DAYS
     Dates: start: 20230720
  24. DEXAMETHASONE [Concomitant]
     Active Substance: DEXAMETHASONE
  25. MEROPENEM [Concomitant]
     Active Substance: MEROPENEM
     Indication: Urosepsis
  26. MEROPENEM [Concomitant]
     Active Substance: MEROPENEM
     Indication: Infection prophylaxis
  27. ZALDIAR [Concomitant]
     Active Substance: ACETAMINOPHEN\TRAMADOL HYDROCHLORIDE
     Indication: Spinal pain
     Dosage: 1 TABLET ,ONCE
     Dates: start: 20230626
  28. ZALDIAR [Concomitant]
     Active Substance: ACETAMINOPHEN\TRAMADOL HYDROCHLORIDE
     Indication: Chronic disease
  29. CONCORDIN [Concomitant]
     Indication: Hypertension
     Dosage: 2.5 MG, EVERY 1 DAYS
     Dates: start: 20230614
  30. VALACYCLOVIR HYDROCHLORIDE [Concomitant]
     Active Substance: VALACYCLOVIR HYDROCHLORIDE
     Indication: Antiviral prophylaxis
     Dosage: 500 MG, EVERY 1 DAYS
     Dates: start: 20230609
  31. TAMSULOSIN HYDROCHLORIDE [Concomitant]
     Active Substance: TAMSULOSIN HYDROCHLORIDE
     Indication: Benign prostatic hyperplasia
     Dosage: 0.4 MG, EVERY 1 DAYS, START DATE: 2020

REACTIONS (5)
  - Hypotension [Not Recovered/Not Resolved]
  - Sepsis [Recovered/Resolved]
  - Septic shock [Fatal]
  - Pneumothorax [Not Recovered/Not Resolved]
  - Dyspnoea [Not Recovered/Not Resolved]

NARRATIVE: CASE EVENT DATE: 20230718
